FAERS Safety Report 12969564 (Version 1)
Quarter: 2016Q4

REPORT INFORMATION
  Report Type: Spontaneous
  Country: US (occurrence: US)
  Receive Date: 20161123
  Receipt Date: 20161123
  Transmission Date: 20170207
  Serious: Yes (Hospitalization)
  Sender: FDA-Public Use
  Company Number: US-RELYPSA-RLY2016003798

PATIENT
  Age: 50 Year
  Sex: Male

DRUGS (8)
  1. SENSIPAR [Concomitant]
     Active Substance: CINACALCET HYDROCHLORIDE
  2. VELTASSA [Suspect]
     Active Substance: PATIROMER
     Indication: HYPERKALAEMIA
     Dosage: 8.4 G, QD
     Route: 048
     Dates: start: 20160519, end: 2016
  3. HYDRALAZINE HCL [Concomitant]
     Active Substance: HYDRALAZINE HYDROCHLORIDE
  4. RENVELA [Concomitant]
     Active Substance: SEVELAMER CARBONATE
  5. LISINOPRIL. [Concomitant]
     Active Substance: LISINOPRIL
  6. FOSRENOL [Concomitant]
     Active Substance: LANTHANUM CARBONATE
  7. CALCIUM CARBONATE. [Concomitant]
     Active Substance: CALCIUM CARBONATE
  8. METOPROLOL TARTRATE. [Concomitant]
     Active Substance: METOPROLOL TARTRATE

REACTIONS (1)
  - Nephrectomy [Unknown]

NARRATIVE: CASE EVENT DATE: 20160928
